FAERS Safety Report 8477662-5 (Version None)
Quarter: 2012Q2

REPORT INFORMATION
  Report Type: 
  Country: None (occurrence: None)
  Receive Date: 20120629
  Receipt Date: 20120621
  Transmission Date: 20120825
  Serious: Yes (Hospitalization)
  Sender: FDA-Public Use
  Company Number: US-BAYER-2012-012877

PATIENT
  Age: 19 Year
  Sex: Female
  Weight: 44.444 kg

DRUGS (9)
  1. LEXAPRO [Concomitant]
     Indication: ANXIETY
  2. PANTOPRAZOLE SODIUM [Concomitant]
     Dosage: 40 MG, UNK DISPENSED 01-OCT-2008
     Route: 048
  3. YAZ [Suspect]
     Indication: CONTRACEPTION
     Dosage: UNK
     Dates: start: 20070701, end: 20091201
  4. LEXAPRO [Concomitant]
     Indication: DEPRESSION
     Dosage: UNK
     Dates: start: 20080301
  5. ONDANSETRON HYDROCHLORIDE [Concomitant]
     Dosage: 4 MG, UNK DISPENSED 14-AUG-2008
     Route: 048
  6. METOCLOPRAMIDE [Concomitant]
     Dosage: 5 MG, UNK 14-APR-2008 [120 TABLETS DISPENSED]
     Route: 048
  7. LORAZEPAM [Concomitant]
     Dosage: 1 MG, UNK DISPENSED 01-OCT-2008
     Route: 048
  8. SEASONIQUE [Concomitant]
     Indication: CONTRACEPTION
     Dosage: UNK
     Dates: start: 20100301
  9. FLUCONAZOLE [Concomitant]
     Dosage: 150 MG, UNK DISPENSED 27-AUG-2008
     Route: 048

REACTIONS (14)
  - PAIN [None]
  - DEPRESSION [None]
  - NERVE INJURY [None]
  - ANXIETY [None]
  - IMPAIRED GASTRIC EMPTYING [None]
  - ABDOMINAL PAIN [None]
  - WEIGHT DECREASED [None]
  - GASTROINTESTINAL PAIN [None]
  - GALLBLADDER DISORDER [None]
  - ACTIVITIES OF DAILY LIVING IMPAIRED [None]
  - VOMITING [None]
  - ANHEDONIA [None]
  - INJURY [None]
  - NAUSEA [None]
